FAERS Safety Report 9916465 (Version 2)
Quarter: 2014Q1

REPORT INFORMATION
  Report Type: Report from Study
  Country: FR (occurrence: FR)
  Receive Date: 20140221
  Receipt Date: 20140307
  Transmission Date: 20141002
  Serious: Yes (Hospitalization)
  Sender: FDA-Public Use
  Company Number: FR-BAYER-2014-025624

PATIENT
  Age: 75 Year
  Sex: Male
  Weight: 79 kg

DRUGS (9)
  1. SORAFENIB (RAF KINASE INHIBITOR) [Suspect]
     Indication: HEPATOCELLULAR CARCINOMA
     Dosage: 400MG DAILY
     Route: 048
     Dates: start: 20121224, end: 20140131
  2. GADOXETIC ACID DISODIUM [Suspect]
     Indication: HEPATOCELLULAR CARCINOMA
     Dosage: 9ML
     Route: 042
     Dates: start: 20120824, end: 20120824
  3. YTTRIUM (90 Y) [Suspect]
     Dosage: UNK
     Dates: start: 20121025, end: 20121218
  4. NICARDIPINE [Concomitant]
     Indication: HYPERTENSION
     Dosage: 100MG DAILY
     Route: 048
     Dates: start: 201101, end: 20130121
  5. LERCAN [Concomitant]
     Indication: HYPERTENSION
     Dosage: 20MG DAILY
     Dates: start: 20130122
  6. IMODIUM [Concomitant]
     Indication: DIARRHOEA
     Dosage: 2 MG, PRN
     Route: 048
     Dates: start: 20130111
  7. PARACETAMOL [Concomitant]
     Dosage: 2G DAILY
     Route: 048
     Dates: start: 20130121
  8. OMEPRAZOLE [Concomitant]
     Dosage: 20MG DAILY
     Route: 048
     Dates: start: 20130121
  9. LOCAPRED [Concomitant]
     Indication: PALMAR-PLANTAR ERYTHRODYSAESTHESIA SYNDROME
     Dosage: 1 APP DAILY
     Route: 061
     Dates: start: 20130105, end: 20130108

REACTIONS (1)
  - Ascites [Not Recovered/Not Resolved]
